FAERS Safety Report 5951751-9 (Version None)
Quarter: 2008Q4

REPORT INFORMATION
  Report Type: 
  Country: None (occurrence: None)
  Receive Date: 20081113
  Receipt Date: 20081103
  Transmission Date: 20090506
  Serious: Yes (Hospitalization, Disabling, Other)
  Sender: FDA-Public Use
  Company Number: US-MERCK-0805USA03761

PATIENT
  Age: 53 Year
  Sex: Female

DRUGS (1)
  1. FOSAMAX [Suspect]
     Indication: OSTEOPOROSIS
     Route: 048
     Dates: start: 20000101, end: 20060713

REACTIONS (31)
  - ADVERSE DRUG REACTION [None]
  - ANXIETY [None]
  - ATRIOVENTRICULAR BLOCK FIRST DEGREE [None]
  - BACTERIAL INFECTION [None]
  - BLINDNESS UNILATERAL [None]
  - CAROTID ARTERY OCCLUSION [None]
  - CENTRAL PAIN SYNDROME [None]
  - CEREBROVASCULAR ACCIDENT [None]
  - CHRONIC OBSTRUCTIVE PULMONARY DISEASE [None]
  - CONVULSION [None]
  - DECREASED APPETITE [None]
  - ELECTROCARDIOGRAM ST-T CHANGE [None]
  - FALL [None]
  - GASTROENTERITIS VIRAL [None]
  - GASTROOESOPHAGEAL REFLUX DISEASE [None]
  - HAEMORRHAGE [None]
  - JAW DISORDER [None]
  - LOOSE TOOTH [None]
  - MAJOR DEPRESSION [None]
  - MASTICATION DISORDER [None]
  - MUSCULOSKELETAL PAIN [None]
  - NEURODERMATITIS [None]
  - NIGHTMARE [None]
  - OSTEONECROSIS [None]
  - PAIN IN EXTREMITY [None]
  - PERIPHERAL VASCULAR DISORDER [None]
  - PNEUMONIA [None]
  - RESORPTION BONE INCREASED [None]
  - TIBIA FRACTURE [None]
  - URINARY TRACT DISORDER [None]
  - WEIGHT DECREASED [None]
